FAERS Safety Report 24703229 (Version 1)
Quarter: 2024Q4

REPORT INFORMATION
  Report Type: Spontaneous
  Country: IQ (occurrence: IQ)
  Receive Date: 20241205
  Receipt Date: 20241205
  Transmission Date: 20250115
  Serious: Yes (Other)
  Sender: PHARMACEUTICAL ASSOC
  Company Number: IQ-PAIPHARMA-2024-IQ-000004

PATIENT
  Age: 31 Year
  Sex: Male

DRUGS (2)
  1. PREDNISOLONE [Suspect]
     Active Substance: PREDNISOLONE
     Indication: Takayasu^s arteritis
     Dosage: 60 MG DAILY
     Route: 048
     Dates: start: 202303
  2. METHOTREXATE [Concomitant]
     Active Substance: METHOTREXATE
     Dosage: 15 MG/WEEK

REACTIONS (2)
  - Erectile dysfunction [Unknown]
  - Acne [Unknown]
